FAERS Safety Report 15688265 (Version 1)
Quarter: 2018Q4

REPORT INFORMATION
  Report Type: Spontaneous
  Country: DE (occurrence: DE)
  Receive Date: 20181205
  Receipt Date: 20181205
  Transmission Date: 20190205
  Serious: Yes (Death, Life-Threatening, Hospitalization, Other)
  Sender: FDA-Public Use
  Company Number: DE-009507513-1810DEU013091

PATIENT
  Sex: Male
  Weight: 100 kg

DRUGS (16)
  1. LYRICA [Concomitant]
     Active Substance: PREGABALIN
     Dosage: 100 MILLIGRAM, BID
     Route: 048
  2. PANTOZOL [Concomitant]
     Active Substance: PANTOPRAZOLE SODIUM
     Dosage: 40 MILLIGRAM, QD IN THE EVENING
  3. METFORMIN [Concomitant]
     Active Substance: METFORMIN HYDROCHLORIDE
     Dosage: 500 MILLIGRAM, QD IN THE EVENING
  4. ASPIRIN. [Concomitant]
     Active Substance: ASPIRIN
     Dosage: 100 MILLIGRAM, QD
  5. PEMETREXED DISODIUM [Concomitant]
     Active Substance: PEMETREXED DISODIUM
     Indication: NON-SMALL CELL LUNG CANCER
     Dosage: UNK
     Dates: start: 20181016, end: 20181016
  6. MAGNESIUM VERLA (MAGNESIUM ASPARTATE) [Concomitant]
     Active Substance: MAGNESIUM ASPARTATE
     Dosage: 1 DOSAGE FORM, BID
  7. AMLODIPINE [Concomitant]
     Active Substance: AMLODIPINE BESYLATE
     Dosage: 10 MILLIGRAM, QD IN THE MORNING
  8. SIMVASTATIN. [Concomitant]
     Active Substance: SIMVASTATIN
     Dosage: 20 MILLIGRAM, QD IN THE EVENING
  9. TIZANIDINE HYDROCHLORIDE. [Concomitant]
     Active Substance: TIZANIDINE HYDROCHLORIDE
     Dosage: 2 MILLIGRAM, BID
  10. FOLSAN [Concomitant]
     Active Substance: FOLIC ACID
     Dosage: 0.4 MILLIGRAM, QD
  11. NOVALGIN (ACETAMINOPHEN (+) CAFFEINE (+) PROPYPHENAZONE) [Concomitant]
     Active Substance: ACETAMINOPHEN\CAFFEINE\PROPYPHENAZONE
     Dosage: 1 DOSAGE FORM, QID
  12. PEMBROLIZUMAB. [Suspect]
     Active Substance: PEMBROLIZUMAB
     Indication: NON-SMALL CELL LUNG CANCER
     Dosage: 200 MILLIGRAM, EVERY THREE WEEKS
     Dates: start: 20181016, end: 20181016
  13. PALLADON [Concomitant]
     Active Substance: HYDROMORPHONE
     Dosage: 2 DOSAGE FORM, QID
  14. CISPLATIN. [Concomitant]
     Active Substance: CISPLATIN
     Indication: NON-SMALL CELL LUNG CANCER
     Dosage: UNK
     Dates: start: 20181016, end: 20181016
  15. CANDESARTAN. [Concomitant]
     Active Substance: CANDESARTAN
     Dosage: 10 MILLIGRAM, QD IN THE MORNING
  16. ALLOPURINOL. [Concomitant]
     Active Substance: ALLOPURINOL
     Dosage: 300 MILLIGRAM, QD

REACTIONS (1)
  - Septic shock [Fatal]

NARRATIVE: CASE EVENT DATE: 20181019
